FAERS Safety Report 8052511-8 (Version None)
Quarter: 2012Q1

REPORT INFORMATION
  Report Type: 
  Country: None (occurrence: None)
  Receive Date: 20120118
  Receipt Date: 20120112
  Transmission Date: 20120608
  Serious: Yes (Hospitalization, Other)
  Sender: FDA-Public Use
  Company Number: US-PFIZER INC-2011302609

PATIENT
  Age: 9 Year
  Sex: Female
  Weight: 39.6 kg

DRUGS (4)
  1. TRAMADOL HCL [Suspect]
     Dosage: 25 MG, AS NEEDED
     Dates: start: 20090926
  2. TRAMADOL HCL [Suspect]
     Dosage: 25 MG, AS NEEDED
     Dates: start: 20100509
  3. PIROXICAM [Suspect]
     Dosage: 10 MG, DAILY, AS NEEDED
     Dates: start: 20090601
  4. PREVACID [Concomitant]
     Dosage: 30 MG, 1X/DAY
     Dates: start: 20091101

REACTIONS (2)
  - SYNOVITIS [None]
  - COMPLEX REGIONAL PAIN SYNDROME [None]
